FAERS Safety Report 4781709-7 (Version None)
Quarter: 2005Q3

REPORT INFORMATION
  Report Type: 
  Country: None (occurrence: None)
  Receive Date: 20050927
  Receipt Date: 20050907
  Transmission Date: 20060218
  Serious: Yes (Hospitalization)
  Sender: FDA-Public Use
  Company Number: PAR_0188_2005

PATIENT
  Age: 46 Year
  Sex: Male

DRUGS (12)
  1. LISINOPRIL [Suspect]
     Indication: HYPERTENSION
     Dosage: 20 MG QD
     Dates: start: 20040810, end: 20041026
  2. LITHIUM [Suspect]
     Indication: HYPOMANIA
     Dosage: 900 MG QHS
     Dates: start: 20040810, end: 20041026
  3. LITHIUM [Suspect]
     Indication: HYPOMANIA
     Dosage: 300 MG QHS
     Dates: start: 20040209, end: 20040401
  4. LITHIUM [Suspect]
     Indication: HYPOMANIA
     Dosage: 600 MG QHS
     Dates: start: 20040419, end: 20040801
  5. FOSINOPRIL SODIUM [Concomitant]
  6. ATENOLOL [Concomitant]
  7. HALOPERIDOL [Concomitant]
  8. BENZTROPINE [Concomitant]
  9. OLANZAPINE [Concomitant]
  10. CLONAZEPAM [Concomitant]
  11. DIVALPROEX SODIUM [Concomitant]
  12. SIMVASTATIN [Concomitant]

REACTIONS (8)
  - BLOOD CREATINE INCREASED [None]
  - BLOOD POTASSIUM INCREASED [None]
  - BRADYCARDIA [None]
  - SALIVARY HYPERSECRETION [None]
  - SEDATION [None]
  - THERAPEUTIC AGENT TOXICITY [None]
  - THERAPY NON-RESPONDER [None]
  - TREMOR [None]
